FAERS Safety Report 9988664 (Version 1)
Quarter: 2014Q1

REPORT INFORMATION
  Report Type: Spontaneous
  Country: US (occurrence: US)
  Receive Date: 20140310
  Receipt Date: 20140310
  Transmission Date: 20141002
  Serious: No
  Sender: FDA-Public Use
  Company Number: US-009507513-1402USA013328

PATIENT
  Sex: 0

DRUGS (3)
  1. EMEND [Suspect]
     Indication: CHEMOTHERAPY
     Dosage: 150 MG/SINGLE ADMINISTRATION
     Route: 042
  2. BENADRYL [Concomitant]
     Indication: PREMEDICATION
  3. CORTICOSTEROIDS (UNSPECIFIED) [Concomitant]
     Indication: PREMEDICATION

REACTIONS (3)
  - Back pain [Unknown]
  - Dyspnoea [Unknown]
  - Flushing [Unknown]
